FAERS Safety Report 5489121-2 (Version None)
Quarter: 2007Q4

REPORT INFORMATION
  Report Type: 
  Country: None (occurrence: None)
  Receive Date: 20071016
  Receipt Date: 20071001
  Transmission Date: 20080405
  Serious: Yes (Death)
  Sender: FDA-Public Use
  Company Number: S07-NLD-05429-01

PATIENT
  Age: 36 Year
  Sex: Male
  Weight: 80 kg

DRUGS (3)
  1. CITALOPRAM HYDROBROMIDE [Suspect]
     Indication: DEPRESSION
     Dosage: 4200 MG ONCE PO
     Route: 048
     Dates: start: 20070916, end: 20070916
  2. CITALOPRAM HYDROBROMIDE [Suspect]
     Indication: DEPRESSION
     Dosage: 20 MG QD PO
     Route: 048
     Dates: start: 20060913
  3. METOPROLOL [Suspect]
     Dates: start: 20070916, end: 20070916

REACTIONS (3)
  - COMPLETED SUICIDE [None]
  - INTENTIONAL OVERDOSE [None]
  - SELF-MEDICATION [None]
